FAERS Safety Report 6918092-4 (Version None)
Quarter: 2010Q3

REPORT INFORMATION
  Report Type: 
  Country: None (occurrence: None)
  Receive Date: 20100806
  Receipt Date: 20100723
  Transmission Date: 20110219
  Serious: Yes (Other)
  Sender: FDA-Public Use
  Company Number: 2010AL002038

PATIENT
  Age: 71 Year
  Sex: Female

DRUGS (3)
  1. CITALOPRAM HYDROBROMIDE [Suspect]
     Indication: DEPRESSED MOOD
     Dosage: 20 MG; PO
     Route: 048
     Dates: start: 20100212, end: 20100214
  2. SERETIDE [Concomitant]
  3. SALMETEROL [Concomitant]

REACTIONS (1)
  - ANGLE CLOSURE GLAUCOMA [None]
